FAERS Safety Report 5519350-0 (Version None)
Quarter: 2007Q4

REPORT INFORMATION
  Report Type: 
  Country: None (occurrence: None)
  Receive Date: 20071116
  Receipt Date: 20071105
  Transmission Date: 20080405
  Serious: Yes (Other)
  Sender: FDA-Public Use
  Company Number: ES-NOVOPROD-269064

PATIENT
  Age: 27 Year
  Sex: Female

DRUGS (4)
  1. LEVEMIR [Suspect]
     Indication: DIABETES MELLITUS
     Dosage: 18 IE, QD
     Dates: end: 20061129
  2. NOVORAPID [Concomitant]
     Indication: DIABETES MELLITUS
     Dosage: 2+4 IU, QD
  3. HUMALOG MIX 50 [Concomitant]
     Indication: DIABETES MELLITUS
     Dosage: 6 IE, QD
  4. INSULATARD [Concomitant]

REACTIONS (1)
  - ABORTION INDUCED [None]
